FAERS Safety Report 21260158 (Version 1)
Quarter: 2022Q3

REPORT INFORMATION
  Report Type: Report from Study
  Country: US (occurrence: US)
  Receive Date: 20220826
  Receipt Date: 20220826
  Transmission Date: 20221027
  Serious: Yes (Hospitalization, Other)
  Sender: FDA-Public Use
  Company Number: US-BRISTOL-MYERS SQUIBB COMPANY-2022-092467

PATIENT
  Age: 72 Year
  Sex: Female
  Weight: 127 kg

DRUGS (1)
  1. REVLIMID [Suspect]
     Active Substance: LENALIDOMIDE
     Indication: Plasma cell myeloma
     Dosage: DAILY 21 DAYS
     Route: 048
     Dates: start: 20180514

REACTIONS (4)
  - Malaise [Unknown]
  - Oesophageal obstruction [Unknown]
  - Vomiting [Unknown]
  - Diarrhoea [Unknown]
